FAERS Safety Report 9124974 (Version 1)
Quarter: 2013Q1

REPORT INFORMATION
  Report Type: Spontaneous
  Country: GB (occurrence: GB)
  Receive Date: 20130121
  Receipt Date: 20130121
  Transmission Date: 20140127
  Serious: Yes (Life-Threatening)
  Sender: FDA-Public Use
  Company Number: GB-ABBOTT-13P-167-1037764-00

PATIENT
  Age: 2 Year
  Sex: Male

DRUGS (3)
  1. ULTANE [Suspect]
     Indication: ANAESTHESIA
     Route: 055
  2. AMOXICILLIN\CLAVULANATE POTASSIUM [Concomitant]
     Indication: PRODUCT USED FOR UNKNOWN INDICATION
  3. PARACETAMOL [Concomitant]
     Indication: PRODUCT USED FOR UNKNOWN INDICATION

REACTIONS (1)
  - Supraventricular tachycardia [Recovered/Resolved]
